FAERS Safety Report 24943532 (Version 1)
Quarter: 2025Q1

REPORT INFORMATION
  Report Type: Spontaneous
  Country: PL (occurrence: PL)
  Receive Date: 20250207
  Receipt Date: 20250207
  Transmission Date: 20250408
  Serious: Yes (Other)
  Sender: EXELIXIS
  Company Number: PL-IPSEN Group, Research and Development-2025-02349

PATIENT
  Age: 71 Year
  Sex: Male
  Weight: 125 kg

DRUGS (2)
  1. CABOMETYX [Suspect]
     Active Substance: CABOZANTINIB S-MALATE
     Indication: Renal cancer
     Route: 048
  2. CABOMETYX [Suspect]
     Active Substance: CABOZANTINIB S-MALATE
     Route: 048
     Dates: start: 202011

REACTIONS (6)
  - Ageusia [Unknown]
  - Subcutaneous abscess [Unknown]
  - Skin ulcer [Unknown]
  - Oral discomfort [Unknown]
  - Skin exfoliation [Unknown]
  - Hyperkeratosis [Unknown]
